FAERS Safety Report 8529231 (Version 3)
Quarter: 2012Q4

REPORT INFORMATION
  Report Type: 
  Country: US (occurrence: US)
  Receive Date: 20120425
  Receipt Date: 20120925
  Transmission Date: 20130627
  Serious: Yes (Other)
  Sender: FDA-Public Use
  Company Number: US-BAYER-2012-038689

PATIENT
  Age: 26 Year
  Sex: Female
  Weight: 40.82 kg

DRUGS (2)
  1. YAZ [Suspect]
     Dosage: UNK
     Route: 048
     Dates: start: 2002, end: 2002
  2. YASMIN [Suspect]
     Dosage: UNK
     Route: 048
     Dates: start: 2003, end: 2003

REACTIONS (5)
  - Cholecystectomy [None]
  - Cholelithiasis [None]
  - Menstrual disorder [None]
  - Injury [None]
  - Pain [None]
